FAERS Safety Report 9146700 (Version 2)
Quarter: 2013Q3

REPORT INFORMATION
  Report Type: Report from Study
  Country: JP (occurrence: JP)
  Receive Date: 20130307
  Receipt Date: 20130703
  Transmission Date: 20140515
  Serious: Yes (Death, Other)
  Sender: FDA-Public Use
  Company Number: JP-ROCHE-1084045

PATIENT
  Age: 91 Year
  Sex: Male

DRUGS (3)
  1. ALTEPLASE [Suspect]
     Indication: THROMBOTIC CEREBRAL INFARCTION
     Route: 042
     Dates: start: 20110814
  2. RADICUT [Suspect]
     Indication: THROMBOTIC CEREBRAL INFARCTION
     Route: 041
     Dates: start: 20110814, end: 20110826
  3. OZAGREL SODIUM [Concomitant]
     Route: 041
     Dates: start: 20110815, end: 20110822

REACTIONS (2)
  - Cerebral haemorrhage [Recovering/Resolving]
  - General physical health deterioration [Fatal]
